FAERS Safety Report 23828707 (Version 1)
Quarter: 2024Q2

REPORT INFORMATION
  Report Type: Spontaneous
  Country: IT (occurrence: IT)
  Receive Date: 20240508
  Receipt Date: 20240508
  Transmission Date: 20240715
  Serious: Yes (Hospitalization)
  Sender: FDA-Public Use
  Company Number: None

PATIENT
  Age: 44 Year
  Sex: Female

DRUGS (3)
  1. ALPRAZOLAM [Suspect]
     Active Substance: ALPRAZOLAM
     Dosage: 10 MG
     Route: 048
  2. ZOLPIDEM TARTRATE [Suspect]
     Active Substance: ZOLPIDEM TARTRATE
     Dosage: 0.7 G
     Route: 048
  3. ACETAMINOPHEN\CAFFEINE\ORPHENADRINE CITRATE [Suspect]
     Active Substance: ACETAMINOPHEN\CAFFEINE\ORPHENADRINE CITRATE
     Dosage: 6 DF
     Route: 048

REACTIONS (3)
  - Toxicity to various agents [Recovering/Resolving]
  - Hypertension [Recovering/Resolving]
  - Somnolence [Recovering/Resolving]

NARRATIVE: CASE EVENT DATE: 20230511
